FAERS Safety Report 25450570 (Version 1)
Quarter: 2025Q2

REPORT INFORMATION
  Report Type: Spontaneous
  Country: DE (occurrence: DE)
  Receive Date: 20250618
  Receipt Date: 20250618
  Transmission Date: 20250716
  Serious: Yes (Other)
  Sender: SANOFI AVENTIS
  Company Number: DE-SANOFI-02557628

PATIENT
  Age: 85 Year
  Sex: Female

DRUGS (1)
  1. ZOLPIDEM TARTRATE [Suspect]
     Active Substance: ZOLPIDEM TARTRATE
     Dates: start: 20250614

REACTIONS (6)
  - Loss of consciousness [Unknown]
  - Hallucination [Unknown]
  - Gait disturbance [Unknown]
  - Somnolence [Not Recovered/Not Resolved]
  - Contusion [Unknown]
  - Muscular weakness [Unknown]

NARRATIVE: CASE EVENT DATE: 20250614
